FAERS Safety Report 8274212-3 (Version None)
Quarter: 2012Q2

REPORT INFORMATION
  Report Type: 
  Country: None (occurrence: None)
  Receive Date: 20120411
  Receipt Date: 20120409
  Transmission Date: 20120825
  Serious: Yes (Other)
  Sender: FDA-Public Use
  Company Number: US-ROCHE-1057986

PATIENT
  Sex: Male

DRUGS (3)
  1. ACCUTANE [Suspect]
     Indication: PRODUCT USED FOR UNKNOWN INDICATION
     Dates: start: 19970601, end: 20000701
  2. ACCUTANE [Suspect]
     Dates: start: 19980101
  3. ACCUTANE [Suspect]
     Dates: start: 20000201, end: 20000701

REACTIONS (1)
  - COLITIS ULCERATIVE [None]
